FAERS Safety Report 7443666-4 (Version None)
Quarter: 2011Q2

REPORT INFORMATION
  Report Type: 
  Country: None (occurrence: None)
  Receive Date: 20110428
  Receipt Date: 20110426
  Transmission Date: 20111010
  Serious: Yes (Hospitalization)
  Sender: FDA-Public Use
  Company Number: IT-PFIZER INC-2011090442

PATIENT
  Age: 46 Year
  Sex: Male

DRUGS (3)
  1. TRITTICO [Suspect]
     Indication: PSYCHOMOTOR HYPERACTIVITY
     Dosage: 50 MG, 1X/DAY
     Route: 048
     Dates: start: 20110306, end: 20110406
  2. CHLORPROMAZINE HYDROCHLORIDE [Suspect]
     Indication: FAECALOMA
     Dosage: 50 MG, AS NEEDED
     Route: 030
     Dates: start: 20110306, end: 20110406
  3. HALCION [Suspect]
     Indication: FAECALOMA
     Dosage: 125 UG, AS NEEDED
     Route: 048
     Dates: start: 20110306, end: 20110406

REACTIONS (2)
  - ABDOMINAL PAIN [None]
  - FAECALOMA [None]
